FAERS Safety Report 8369568-7 (Version None)
Quarter: 2012Q2

REPORT INFORMATION
  Report Type: 
  Country: None (occurrence: None)
  Receive Date: 20120517
  Receipt Date: 20120517
  Transmission Date: 20120825
  Serious: No
  Sender: FDA-Public Use
  Company Number: None

PATIENT
  Sex: Female
  Weight: 65.7716 kg

DRUGS (1)
  1. LACTULOSE [Suspect]
     Indication: LIVER DISORDER
     Dates: start: 20120414, end: 20120430

REACTIONS (4)
  - PELVIC PAIN [None]
  - MALAISE [None]
  - BACK PAIN [None]
  - RENAL PAIN [None]
